FAERS Safety Report 13818925 (Version 2)
Quarter: 2018Q1

REPORT INFORMATION
  Report Type: Report from Study
  Country: US (occurrence: US)
  Receive Date: 20170731
  Receipt Date: 20180201
  Transmission Date: 20180508
  Serious: No
  Sender: FDA-Public Use
  Company Number: US-EXELIXIS-CABO-17007992

PATIENT
  Sex: Male

DRUGS (1)
  1. CABOMETYX [Suspect]
     Active Substance: CABOZANTINIB S-MALATE
     Indication: RENAL CANCER
     Dosage: UNK
     Dates: start: 20161017, end: 20161216

REACTIONS (9)
  - Dyspnoea exertional [Unknown]
  - Tachycardia [Unknown]
  - Hyperthyroidism [Unknown]
  - Depression [Unknown]
  - Fatigue [Unknown]
  - Erythema [Unknown]
  - Oedema peripheral [Unknown]
  - Feeling abnormal [Unknown]
  - Anxiety [Unknown]
